FAERS Safety Report 5089407-X (Version None)
Quarter: 2006Q3

REPORT INFORMATION
  Report Type: 
  Country: None (occurrence: None)
  Receive Date: 20060822
  Receipt Date: 20060818
  Transmission Date: 20061208
  Serious: Yes (Other)
  Sender: FDA-Public Use
  Company Number: TCI2006A03409

PATIENT
  Age: 71 Year
  Sex: Male

DRUGS (5)
  1. LANSOPRAZOLE [Suspect]
     Indication: REFLUX OESOPHAGITIS
     Dosage: 15 MG (15 MG, 1 IN 1 D) PER ORAL
     Route: 048
     Dates: start: 20060616, end: 20060713
  2. BUFFERIN [Concomitant]
  3. PANALDINE (TICLOPIDINE HYDROCHLORIDE) (PREPARATION FOR ORAL USE (NOS)) [Concomitant]
  4. HERBESSER R (DILTIAZEM HYDROCHLORDE) (CAPSULES) [Concomitant]
  5. MUCOSTA (REBAMIPIDE) (PREPARATION FOR ORAL USE (NOS)) [Concomitant]

REACTIONS (2)
  - BLOOD CREATINE PHOSPHOKINASE INCREASED [None]
  - BLOOD CREATINE PHOSPHOKINASE MB INCREASED [None]
